FAERS Safety Report 6383646-3 (Version None)
Quarter: 2009Q3

REPORT INFORMATION
  Report Type: 
  Country: None (occurrence: None)
  Receive Date: 20090929
  Receipt Date: 20090929
  Transmission Date: 20100115
  Serious: Yes (Life-Threatening, Hospitalization)
  Sender: FDA-Public Use
  Company Number: None

PATIENT
  Age: 47 Year
  Sex: Female
  Weight: 72.5755 kg

DRUGS (1)
  1. ORTHO TRI-CYCLEN LO [Suspect]
     Indication: MENORRHAGIA
     Dosage: 1 PILL DAILY
     Dates: start: 20090401, end: 20090907

REACTIONS (2)
  - PLEURISY [None]
  - PULMONARY EMBOLISM [None]
